FAERS Safety Report 4907789-3 (Version None)
Quarter: 2006Q1

REPORT INFORMATION
  Report Type: 
  Country: None (occurrence: None)
  Receive Date: 20060210
  Receipt Date: 20060201
  Transmission Date: 20060701
  Serious: Yes (Other)
  Sender: FDA-Public Use
  Company Number: US-BRISTOL-MYERS SQUIBB COMPANY-13268248

PATIENT
  Age: 71 Year
  Sex: Female
  Weight: 77 kg

DRUGS (4)
  1. COUMADIN [Suspect]
     Indication: ATRIAL FIBRILLATION
  2. SYNTHROID [Concomitant]
  3. ATENOLOL [Concomitant]
  4. LASIX [Concomitant]

REACTIONS (3)
  - CARDIOVERSION [None]
  - ERYTHEMA [None]
  - PAIN IN EXTREMITY [None]
